FAERS Safety Report 4323198-2 (Version None)
Quarter: 2004Q1

REPORT INFORMATION
  Report Type: 
  Country: None (occurrence: None)
  Receive Date: 20040322
  Receipt Date: 20040310
  Transmission Date: 20041129
  Serious: Yes (Other)
  Sender: FDA-Public Use
  Company Number: HQWYE829815MAR04

PATIENT

DRUGS (1)
  1. ADVIL [Suspect]
     Indication: PAIN
     Dosage: TAKES TWO DURING THE DAY, THEN FOUR AT NIGHT, ORAL
     Route: 048

REACTIONS (3)
  - HYPNOPOMPIC HALLUCINATION [None]
  - INTENTIONAL OVERDOSE [None]
  - SLEEP PARALYSIS [None]
